FAERS Safety Report 10449761 (Version 1)
Quarter: 2014Q3

REPORT INFORMATION
  Report Type: Other
  Country: US (occurrence: US)
  Receive Date: 20140912
  Receipt Date: 20140912
  Transmission Date: 20150326
  Serious: No
  Sender: FDA-Public Use
  Company Number: US-INCYTE CORPORATION-2014IN001984

PATIENT
  Sex: Female

DRUGS (1)
  1. JAKAFI [Suspect]
     Active Substance: RUXOLITINIB
     Indication: RHEUMATOID ARTHRITIS
     Dosage: 15 MG, BID
     Route: 048
     Dates: start: 20130201

REACTIONS (2)
  - Swelling [Unknown]
  - Hypoaesthesia [Unknown]
